FAERS Safety Report 7766070 (Version 2)
Quarter: 2013Q1

REPORT INFORMATION
  Report Type: Spontaneous
  Country: FR (occurrence: FR)
  Receive Date: 20110119
  Receipt Date: 20130129
  Transmission Date: 20140127
  Serious: Yes (Life-Threatening, Hospitalization)
  Sender: FDA-Public Use
  Company Number: FR-ASTRAZENECA-2011SE02431

PATIENT
  Age: 7199 Day
  Sex: Male

DRUGS (22)
  1. INEXIUM [Suspect]
     Indication: GASTROOESOPHAGEAL REFLUX DISEASE
     Route: 048
     Dates: start: 20100807, end: 20100824
  2. OMEPRAZOLE [Suspect]
     Indication: GASTROOESOPHAGEAL REFLUX DISEASE
     Dates: start: 2006, end: 20100730
  3. MERONEM [Concomitant]
     Route: 042
     Dates: start: 20100730, end: 20100814
  4. MERONEM [Concomitant]
     Route: 042
     Dates: start: 20100624, end: 20100906
  5. TARGOCID [Concomitant]
     Route: 042
     Dates: start: 20100730, end: 20100814
  6. TARGOCID [Concomitant]
     Route: 042
     Dates: start: 20100624, end: 20100906
  7. BACTRIM [Concomitant]
     Dates: start: 20100730, end: 20100803
  8. FLAGYL [Concomitant]
     Dates: start: 20100803, end: 20100823
  9. GENTAMICIN [Concomitant]
     Dates: start: 20100624, end: 20100906
  10. VANCOMYCIN [Concomitant]
     Dates: start: 20100624, end: 20100906
  11. NEBCINE [Concomitant]
     Dates: start: 20100705, end: 20100719
  12. RANITIDINE [Concomitant]
  13. SOLUPRED [Concomitant]
  14. TOCO [Concomitant]
  15. ALVITYL [Concomitant]
  16. CREON [Concomitant]
  17. SERETIDE [Concomitant]
  18. SPORANOX [Concomitant]
  19. PULMOZYME [Concomitant]
  20. FORTUM [Concomitant]
     Dates: start: 20100705, end: 20100719
  21. ZYVOXID [Concomitant]
     Dates: start: 20100705, end: 20100719
  22. TIENAM [Concomitant]
     Dates: start: 20100705, end: 20100719

REACTIONS (4)
  - Clostridium difficile sepsis [Recovered/Resolved]
  - Febrile neutropenia [Recovered/Resolved]
  - Pseudomembranous colitis [Recovered/Resolved]
  - Agranulocytosis [Recovered/Resolved]
